FAERS Safety Report 9336993 (Version 2)
Quarter: 2013Q3

REPORT INFORMATION
  Report Type: Spontaneous
  Country: US (occurrence: US)
  Receive Date: 20130607
  Receipt Date: 20130814
  Transmission Date: 20140515
  Serious: Yes (Hospitalization, Other)
  Sender: FDA-Public Use
  Company Number: US-NOVOPROD-379310

PATIENT
  Age: 70 Year
  Sex: Male

DRUGS (15)
  1. VICTOZA [Suspect]
     Indication: TYPE 2 DIABETES MELLITUS
     Dosage: 0.6 MG QD
     Route: 058
     Dates: start: 20120217, end: 20120306
  2. LEVEMIR FLEXPEN [Concomitant]
     Indication: PRODUCT USED FOR UNKNOWN INDICATION
     Dosage: 40 U QD AT HS
     Route: 058
  3. DIGOXIN [Concomitant]
     Indication: PRODUCT USED FOR UNKNOWN INDICATION
     Dosage: 125 MG QOD
     Route: 048
  4. DIGOXIN [Concomitant]
     Dosage: 250 MG QD
     Route: 048
  5. PRAVASTATIN [Concomitant]
     Indication: PRODUCT USED FOR UNKNOWN INDICATION
     Dosage: 80 MG QD
     Route: 048
  6. METOPROLOL SUCCINATE [Concomitant]
     Dosage: 200 MG QD, SUSTAINED RELEASE
     Route: 048
  7. ALLOPURINOL [Concomitant]
     Indication: PRODUCT USED FOR UNKNOWN INDICATION
     Dosage: 200 MG QD
     Route: 048
  8. COLCRYS [Concomitant]
     Indication: PRODUCT USED FOR UNKNOWN INDICATION
     Dosage: 0.6 MG QD
  9. LISINOPRIL [Concomitant]
     Indication: PRODUCT USED FOR UNKNOWN INDICATION
     Dosage: 20 MG QD
     Route: 048
  10. LEVOTHYROXINE [Concomitant]
     Indication: PRODUCT USED FOR UNKNOWN INDICATION
     Dosage: 100 UG QD
     Route: 048
  11. POTASSIUM CHLORIDE [Concomitant]
     Dosage: 20 MG QD, EXTENDED RELEASE
     Route: 048
  12. METFORMIN [Concomitant]
     Indication: PRODUCT USED FOR UNKNOWN INDICATION
     Dosage: 1000 MG QD
     Route: 048
     Dates: end: 20120226
  13. LORAZEPAM [Concomitant]
     Indication: PRODUCT USED FOR UNKNOWN INDICATION
     Dosage: 0.5 MG PRN
     Route: 048
  14. MULTIVITAMIN                       /00097801/ [Concomitant]
     Indication: PRODUCT USED FOR UNKNOWN INDICATION
     Dosage: 1 TAB QD
     Route: 048
  15. ALEVE [Concomitant]
     Indication: PAIN
     Dosage: AS NEEDED FOR PAIN
     Route: 048

REACTIONS (2)
  - Adenocarcinoma pancreas [Not Recovered/Not Resolved]
  - Pancreatitis [Recovered/Resolved]
